FAERS Safety Report 6332571-2 (Version None)
Quarter: 2009Q3

REPORT INFORMATION
  Report Type: 
  Country: None (occurrence: None)
  Receive Date: 20090828
  Receipt Date: 20090818
  Transmission Date: 20100115
  Serious: Yes (Hospitalization, Other)
  Sender: FDA-Public Use
  Company Number: AU-JNJFOC-20090807046

PATIENT
  Sex: Female

DRUGS (2)
  1. RISPERDAL CONSTA [Suspect]
     Indication: SCHIZOPHRENIA
  2. RISPERDAL [Concomitant]
     Indication: SCHIZOPHRENIA

REACTIONS (6)
  - BEDRIDDEN [None]
  - FURUNCLE [None]
  - GENERAL PHYSICAL HEALTH DETERIORATION [None]
  - HYPOVITAMINOSIS [None]
  - MEMORY IMPAIRMENT [None]
  - PRODUCT RECONSTITUTION ISSUE [None]
